FAERS Safety Report 4728837-X (Version None)
Quarter: 2005Q3

REPORT INFORMATION
  Report Type: 
  Country: None (occurrence: None)
  Receive Date: 20050729
  Receipt Date: 20050714
  Transmission Date: 20060218
  Serious: Yes (Death)
  Sender: FDA-Public Use
  Company Number: JP-SANOFI-SYNTHELABO-A01200504832

PATIENT
  Age: 916 Month
  Sex: Female

DRUGS (8)
  1. MYSLEE [Suspect]
     Indication: INSOMNIA
     Route: 048
     Dates: start: 20050702, end: 20050702
  2. BUFFERIN [Concomitant]
     Indication: UPPER RESPIRATORY TRACT INFLAMMATION
     Dosage: 900 MG
     Route: 048
     Dates: start: 20050624
  3. MUCOSTA [Concomitant]
     Indication: GASTRITIS
     Dosage: 300 MG
     Route: 048
     Dates: start: 20050628
  4. VERAPAMIL [Concomitant]
     Indication: SUPRAVENTRICULAR TACHYCARDIA
     Dosage: 120 MG
     Route: 048
     Dates: start: 20050628
  5. KAMAG [Concomitant]
     Indication: CONSTIPATION
     Dosage: 1.5 G
     Route: 048
     Dates: start: 20050628
  6. PL [Concomitant]
     Indication: UPPER RESPIRATORY TRACT INFLAMMATION
     Dates: start: 20050624, end: 20050626
  7. ZITHROMAC [Concomitant]
     Indication: UPPER RESPIRATORY TRACT INFLAMMATION
     Dates: start: 20050624, end: 20050626
  8. SELBEX [Concomitant]
     Indication: GASTRITIS
     Dates: start: 20050624, end: 20050626

REACTIONS (6)
  - BLOOD PRESSURE IMMEASURABLE [None]
  - HYPERHIDROSIS [None]
  - RENAL FAILURE ACUTE [None]
  - RESPIRATORY ARREST [None]
  - RESTLESSNESS [None]
  - TREMOR [None]
